FAERS Safety Report 4266451-3 (Version None)
Quarter: 2004Q1

REPORT INFORMATION
  Report Type: 
  Country: None (occurrence: None)
  Receive Date: 20040108
  Receipt Date: 20031217
  Transmission Date: 20041129
  Serious: Yes (Other)
  Sender: FDA-Public Use
  Company Number: 200311525JP

PATIENT
  Age: 74 Year
  Sex: Female

DRUGS (14)
  1. ARAVA [Suspect]
     Indication: RHEUMATOID ARTHRITIS
     Route: 048
     Dates: start: 20031119, end: 20031202
  2. METHOTREXATE [Concomitant]
     Dosage: DOSE: 6MG/WEEK
     Route: 048
     Dates: start: 20031105, end: 20031118
  3. FOLIAMIN [Concomitant]
     Dosage: DOSE: 5MG/WEEK
     Route: 048
     Dates: end: 20031118
  4. PREDONINE [Concomitant]
     Route: 048
  5. CINAL [Concomitant]
     Route: 048
  6. AZULFIDINE [Concomitant]
     Route: 048
     Dates: end: 20031118
  7. INTEBAN [Concomitant]
     Route: 048
     Dates: end: 20031202
  8. APLACE [Concomitant]
     Route: 048
     Dates: end: 20031218
  9. CHINESE HERBAL MEDICINE [Concomitant]
     Route: 048
     Dates: start: 20031105, end: 20031118
  10. TAGAMET [Concomitant]
     Route: 048
  11. PURSENNID [Concomitant]
     Route: 048
  12. LIMETHASON [Concomitant]
     Route: 042
     Dates: start: 20031018
  13. KENACORT [Concomitant]
     Route: 062
     Dates: end: 20031217
  14. XYLOCAINE [Concomitant]
     Dates: end: 20031217

REACTIONS (2)
  - BLOOD ALKALINE PHOSPHATASE INCREASED [None]
  - GAMMA-GLUTAMYLTRANSFERASE INCREASED [None]
